FAERS Safety Report 7821977-8 (Version None)
Quarter: 2011Q4

REPORT INFORMATION
  Report Type: 
  Country: None (occurrence: None)
  Receive Date: 20111018
  Receipt Date: 20110509
  Transmission Date: 20120403
  Serious: No
  Sender: FDA-Public Use
  Company Number: US-ASTRAZENECA-2011SE27426

PATIENT
  Age: 71 Year
  Sex: Female

DRUGS (7)
  1. SYMBICORT [Suspect]
     Indication: CHRONIC OBSTRUCTIVE PULMONARY DISEASE
     Dosage: TWO TIMES A DAY
     Route: 055
     Dates: start: 20110401
  2. METFORMIN HCL [Concomitant]
  3. SYMBICORT [Suspect]
     Indication: ASTHMA
     Dosage: TWO TIMES A DAY
     Route: 055
     Dates: start: 20110401
  4. HYDROCHLOROTHIAZIDE [Concomitant]
  5. BENACAR [Concomitant]
  6. CRESTOR [Concomitant]
  7. METOPROLOL SUCCINATE [Concomitant]

REACTIONS (2)
  - HEART RATE IRREGULAR [None]
  - TREMOR [None]
